FAERS Safety Report 10559930 (Version 2)
Quarter: 2014Q4

REPORT INFORMATION
  Report Type: Spontaneous
  Country: JP (occurrence: None)
  Receive Date: 20141030
  Receipt Date: 20141208
  Transmission Date: 20150529
  Serious: Yes (Hospitalization)
  Sender: FDA-Public Use
  Company Number: 2014JP000617

PATIENT
  Age: 79 Year
  Sex: Male
  Weight: 47.2 kg

DRUGS (7)
  1. ZYLORIC (ALLOPURINOL) [Concomitant]
     Active Substance: ALLOPURINOL
  2. ADALAT (NIFEDIPINE) [Concomitant]
  3. SEIBULE (MIGLITOL) [Concomitant]
  4. RIONA [Suspect]
     Active Substance: FERRIC CITRATE ANHYDROUS
     Indication: HYPERPHOSPHATAEMIA
     Route: 048
     Dates: start: 20140705, end: 20140809
  5. ONGLYZA [Concomitant]
     Active Substance: SAXAGLIPTIN HYDROCHLORIDE
  6. PLETAAL (CILOSTAZOL) [Concomitant]
  7. TANKARU (CALCIUM CARBONATE) [Concomitant]

REACTIONS (2)
  - Decreased appetite [None]
  - Acute abdomen [None]

NARRATIVE: CASE EVENT DATE: 20140729
